FAERS Safety Report 19892981 (Version 1)
Quarter: 2021Q3

REPORT INFORMATION
  Report Type: Spontaneous
  Country: DE (occurrence: DE)
  Receive Date: 20210929
  Receipt Date: 20210929
  Transmission Date: 20211014
  Serious: Yes (Other)
  Sender: FDA-Public Use
  Company Number: DE-SUN PHARMACEUTICAL INDUSTRIES LTD-2021RR-312868

PATIENT
  Sex: Female
  Weight: 1.74 kg

DRUGS (1)
  1. VENLAFAXINE [Suspect]
     Active Substance: VENLAFAXINE HYDROCHLORIDE
     Indication: BURNOUT SYNDROME
     Dosage: 150 MILLIGRAM, DAILY, 150 [MG/D ]
     Route: 064
     Dates: start: 20200627, end: 20210311

REACTIONS (4)
  - Foetal growth restriction [Unknown]
  - Premature baby [Unknown]
  - Small for dates baby [Unknown]
  - Foetal exposure during pregnancy [Unknown]

NARRATIVE: CASE EVENT DATE: 20210311
